FAERS Safety Report 12252025 (Version 2)
Quarter: 2020Q2

REPORT INFORMATION
  Report Type: Report from Study
  Country: US (occurrence: US)
  Receive Date: 20160411
  Receipt Date: 20200515
  Transmission Date: 20200713
  Serious: Yes (Death, Other)
  Sender: FDA-Public Use
  Company Number: US-CIPLA LTD.-2016US03513

PATIENT

DRUGS (5)
  1. PACLITAXEL. [Suspect]
     Active Substance: PACLITAXEL
     Indication: GASTROOESOPHAGEAL CANCER
     Dosage: 50 MG/M2, WEEKLY ON DAYS 1, 8, 15, 22, AND 29 OF RADIOTHERAPY
  2. FLUOROURACIL. [Suspect]
     Active Substance: FLUOROURACIL
     Indication: GASTROOESOPHAGEAL CANCER
     Dosage: 225 MG/M2/DAY, 96-HOURS CONTINUOUSLY FROM MONDAY TO FRIDAY THROUGH THE DURATION OF RADIOTHERAPY
  3. CARBOPLATIN. [Suspect]
     Active Substance: CARBOPLATIN
     Indication: GASTROOESOPHAGEAL CANCER
     Dosage: AUC 5 (Q4WK), ON DAYS 1 AND 29 OF RADIOTHERAPY
     Route: 042
  4. VANDETANIB. [Suspect]
     Active Substance: VANDETANIB
     Indication: GASTROOESOPHAGEAL CANCER
     Dosage: 100 MILLIGRAM, QD
     Route: 048
  5. VANDETANIB. [Suspect]
     Active Substance: VANDETANIB
     Dosage: 200 MILLIGRAM, QD
     Route: 048

REACTIONS (1)
  - Sudden death [Fatal]
